FAERS Safety Report 11615300 (Version 1)
Quarter: 2015Q4

REPORT INFORMATION
  Report Type: Spontaneous
  Country: US (occurrence: US)
  Receive Date: 20151009
  Receipt Date: 20151009
  Transmission Date: 20160304
  Serious: Yes (Hospitalization)
  Sender: FDA-Public Use
  Company Number: PHEH2015US019449

PATIENT
  Age: 61 Year
  Sex: Female

DRUGS (5)
  1. VICODIN [Suspect]
     Active Substance: ACETAMINOPHEN\HYDROCODONE BITARTRATE
     Indication: BREAST CANCER METASTATIC
     Dosage: 1 DF, UNK (FOR 3-4 DAYS)
     Route: 065
  2. FEMARA [Suspect]
     Active Substance: LETROZOLE
     Indication: BREAST CANCER METASTATIC
     Route: 065
  3. PALBOCICLIB [Suspect]
     Active Substance: PALBOCICLIB
     Indication: BREAST CANCER METASTATIC
     Dosage: 1 DF, QD
     Route: 065
     Dates: start: 201506
  4. VICODIN [Suspect]
     Active Substance: ACETAMINOPHEN\HYDROCODONE BITARTRATE
     Indication: METASTASES TO BONE
  5. PALBOCICLIB [Suspect]
     Active Substance: PALBOCICLIB
     Dosage: UNK
     Route: 065
     Dates: end: 201507

REACTIONS (13)
  - Arthropod bite [Unknown]
  - Skin reaction [Recovered/Resolved]
  - Tongue ulceration [Recovered/Resolved]
  - Oropharyngeal pain [Recovered/Resolved]
  - Rhinalgia [Recovered/Resolved]
  - Dysphagia [Recovering/Resolving]
  - Pain [Recovered/Resolved]
  - Ulcer [Recovered/Resolved]
  - Dehydration [Unknown]
  - Haemoglobin decreased [Unknown]
  - Oral pain [Recovered/Resolved]
  - Blister [Recovered/Resolved]
  - Skin exfoliation [Unknown]

NARRATIVE: CASE EVENT DATE: 201508
